FAERS Safety Report 20745589 (Version 1)
Quarter: 2022Q2

REPORT INFORMATION
  Report Type: Spontaneous
  Country: None (occurrence: US)
  Receive Date: 20220425
  Receipt Date: 20220425
  Transmission Date: 20220720
  Serious: Yes (Other)
  Sender: FDA-Public Use
  Company Number: US-Breckenridge Pharmaceutical, Inc.-2128120

PATIENT
  Sex: Female

DRUGS (1)
  1. LEVETIRACETAM [Suspect]
     Active Substance: LEVETIRACETAM
     Route: 048

REACTIONS (6)
  - Seizure [Unknown]
  - Therapeutic product ineffective [Unknown]
  - Lethargy [Unknown]
  - Pallor [Unknown]
  - Dark circles under eyes [Unknown]
  - Product taste abnormal [Unknown]
